FAERS Safety Report 8104725-6 (Version None)
Quarter: 2012Q1

REPORT INFORMATION
  Report Type: 
  Country: None (occurrence: None)
  Receive Date: 20120130
  Receipt Date: 20120124
  Transmission Date: 20120608
  Serious: Yes (Other)
  Sender: FDA-Public Use
  Company Number: GR-PFIZER INC-2012019976

PATIENT
  Sex: Female

DRUGS (1)
  1. XALATAN [Suspect]
     Dosage: UNK
     Dates: start: 20120120

REACTIONS (6)
  - SWELLING FACE [None]
  - DIZZINESS [None]
  - EYE SWELLING [None]
  - VISION BLURRED [None]
  - DISCOMFORT [None]
  - EYELID PAIN [None]
